FAERS Safety Report 12113777 (Version 3)
Quarter: 2016Q1

REPORT INFORMATION
  Report Type: Spontaneous
  Country: JP (occurrence: JP)
  Receive Date: 20160225
  Receipt Date: 20160331
  Transmission Date: 20160526
  Serious: Yes (Other)
  Sender: FDA-Public Use
  Company Number: JP-ASTRAZENECA-2016SE18365

PATIENT
  Age: 88 Year
  Sex: Male

DRUGS (5)
  1. QUETIAPINE [Suspect]
     Active Substance: QUETIAPINE
     Route: 048
  2. TIAPRIDE [Concomitant]
     Active Substance: TIAPRIDE
     Route: 065
  3. QUETIAPINE [Suspect]
     Active Substance: QUETIAPINE
     Route: 048
  4. DIPRIVAN [Suspect]
     Active Substance: PROPOFOL
     Indication: SEDATIVE THERAPY
     Dosage: 0.18-0.53 MG/KG/HR
     Route: 042
  5. DIPRIVAN [Suspect]
     Active Substance: PROPOFOL
     Indication: SEDATIVE THERAPY
     Dosage: DOSE UNKNOWN
     Route: 042

REACTIONS (4)
  - Pneumonia aspiration [Recovering/Resolving]
  - Septic shock [Recovering/Resolving]
  - Dysphagia [Recovering/Resolving]
  - Off label use [Unknown]
